FAERS Safety Report 10159572 (Version 2)
Quarter: 2014Q2

REPORT INFORMATION
  Report Type: Spontaneous
  Country: US (occurrence: None)
  Receive Date: 20140506
  Receipt Date: 20140610
  Transmission Date: 20141212
  Serious: Yes (Death, Other)
  Sender: FDA-Public Use
  Company Number: ADR-2014-00752

PATIENT
  Age: 47 Year
  Sex: Female

DRUGS (2)
  1. BUPIVACAINE [Suspect]
     Indication: PAIN
     Dosage: 7.596 MG/DAY?
  2. DILAUDID INTRATHECAL [Suspect]
     Dosage: 189.91 MG/DAY

REACTIONS (2)
  - Ovarian cancer [None]
  - Malignant neoplasm progression [None]
